FAERS Safety Report 16759371 (Version 1)
Quarter: 2019Q3

REPORT INFORMATION
  Report Type: Spontaneous
  Country: GB (occurrence: GB)
  Receive Date: 20190830
  Receipt Date: 20190830
  Transmission Date: 20191005
  Serious: Yes (Hospitalization, Other)
  Sender: FDA-Public Use
  Company Number: GB-GLAXOSMITHKLINE-GB2019157014

PATIENT
  Age: 65 Year
  Sex: Male
  Weight: 70 kg

DRUGS (3)
  1. MONTELUKAST [Concomitant]
     Active Substance: MONTELUKAST SODIUM
     Indication: PRODUCT USED FOR UNKNOWN INDICATION
     Dosage: UNK
     Route: 065
  2. SERETIDE [Concomitant]
     Active Substance: FLUTICASONE PROPIONATE\SALMETEROL XINAFOATE
     Indication: PRODUCT USED FOR UNKNOWN INDICATION
     Dosage: UNK
     Route: 065
  3. MALARONE [Suspect]
     Active Substance: ATOVAQUONE\PROGUANIL HYDROCHLORIDE
     Indication: MALARIA PROPHYLAXIS
     Dosage: UNK (250MG/100MG)
     Route: 048
     Dates: start: 20190722, end: 20190726

REACTIONS (17)
  - Drug reaction with eosinophilia and systemic symptoms [Not Recovered/Not Resolved]
  - Abdominal discomfort [Unknown]
  - Rash maculo-papular [Unknown]
  - Cardiac failure congestive [Unknown]
  - Syncope [Unknown]
  - Acute myocardial infarction [Not Recovered/Not Resolved]
  - Pleural effusion [Unknown]
  - Confusional state [Recovered/Resolved]
  - Dyspnoea [Unknown]
  - Rash pruritic [Unknown]
  - Angina pectoris [Unknown]
  - Hypotension [Unknown]
  - Chest discomfort [Unknown]
  - Chills [Recovering/Resolving]
  - Oedema peripheral [Unknown]
  - Chest pain [Unknown]
  - Tachycardia [Recovering/Resolving]

NARRATIVE: CASE EVENT DATE: 2019
